FAERS Safety Report 6152062-1 (Version None)
Quarter: 2009Q2

REPORT INFORMATION
  Report Type: 
  Country: None (occurrence: None)
  Receive Date: 20090410
  Receipt Date: 20090403
  Transmission Date: 20091009
  Serious: Yes (Other)
  Sender: FDA-Public Use
  Company Number: CR-ASTRAZENECA-2008UW22544

PATIENT
  Age: 63 Year
  Sex: Female
  Weight: 83 kg

DRUGS (4)
  1. NEXIUM [Suspect]
     Indication: GASTROOESOPHAGEAL REFLUX DISEASE
     Route: 048
     Dates: start: 20050901, end: 20080920
  2. NEXIUM [Suspect]
     Indication: BARRETT'S OESOPHAGUS
     Route: 048
     Dates: start: 20050901, end: 20080920
  3. CRESTOR [Concomitant]
     Indication: HYPERCHOLESTEROLAEMIA
     Route: 048
     Dates: start: 20070901
  4. TAFIL [Concomitant]
     Route: 048
     Dates: start: 20060901

REACTIONS (1)
  - GASTRIC POLYPS [None]
